FAERS Safety Report 10237688 (Version 1)
Quarter: 2014Q2

REPORT INFORMATION
  Report Type: Spontaneous
  Country: US (occurrence: US)
  Receive Date: 20140616
  Receipt Date: 20140616
  Transmission Date: 20141212
  Serious: Yes (Hospitalization, Other)
  Sender: FDA-Public Use
  Company Number: US-DRREDDYS-USA/USA/14/0041086

PATIENT
  Age: 27 Year
  Sex: Female

DRUGS (5)
  1. NAPROXEN SODIUM 220 MG [Suspect]
     Indication: PRODUCT USED FOR UNKNOWN INDICATION
     Route: 065
  2. IBUPROFEN [Suspect]
     Indication: PRODUCT USED FOR UNKNOWN INDICATION
     Route: 065
  3. OXYCODONE/ACETAMINOPHEN [Suspect]
     Indication: PRODUCT USED FOR UNKNOWN INDICATION
     Route: 065
  4. NORTRIPTYLINE [Suspect]
     Indication: PRODUCT USED FOR UNKNOWN INDICATION
     Route: 065
  5. WARFARIN [Suspect]
     Indication: PRODUCT USED FOR UNKNOWN INDICATION
     Route: 048

REACTIONS (8)
  - Overdose [Unknown]
  - Suicide attempt [Unknown]
  - International normalised ratio increased [Unknown]
  - Blood pressure increased [Unknown]
  - Sedation [Unknown]
  - Miosis [Unknown]
  - Tachycardia [Unknown]
  - Gastrointestinal sounds abnormal [Unknown]
